FAERS Safety Report 4594553-0 (Version None)
Quarter: 2005Q1

REPORT INFORMATION
  Report Type: 
  Country: None (occurrence: None)
  Receive Date: 20050301
  Receipt Date: 20040513
  Transmission Date: 20050727
  Serious: No
  Sender: FDA-Public Use
  Company Number: US-GLAXOSMITHKLINE-A0510762A

PATIENT
  Age: 80 Year
  Sex: Male

DRUGS (5)
  1. VALTREX [Suspect]
     Dosage: 1G TWICE PER DAY
     Route: 048
     Dates: start: 20040513
  2. PAIN MEDICATION [Concomitant]
  3. BLOOD PRESSURE MEDICATION [Concomitant]
  4. CHOLESTEROL REDUCING AGENT [Concomitant]
  5. POTASSIUM CHLORIDE [Concomitant]

REACTIONS (1)
  - DYSPHAGIA [None]
